FAERS Safety Report 4840436-8 (Version None)
Quarter: 2005Q4

REPORT INFORMATION
  Report Type: 
  Country: None (occurrence: None)
  Receive Date: 20051128
  Receipt Date: 20051128
  Transmission Date: 20060501
  Serious: No
  Sender: FDA-Public Use
  Company Number: None

PATIENT
  Sex: Male

DRUGS (1)
  1. OXYCODONE [Suspect]
     Indication: BACK PAIN
     Dosage: 80 MG BID PO
     Route: 048
     Dates: start: 20050215, end: 20050220

REACTIONS (2)
  - CONSTIPATION [None]
  - RECTAL HAEMORRHAGE [None]
